FAERS Safety Report 11361588 (Version 1)
Quarter: 2015Q3

REPORT INFORMATION
  Report Type: Spontaneous
  Country: US (occurrence: US)
  Receive Date: 20150810
  Receipt Date: 20150810
  Transmission Date: 20151125
  Serious: Yes (Hospitalization)
  Sender: FDA-Public Use
  Company Number: US-WATSON-2015-11014

PATIENT
  Sex: Male

DRUGS (3)
  1. ANDRODERM [Suspect]
     Active Substance: TESTOSTERONE
     Indication: BLOOD TESTOSTERONE DECREASED
     Dosage: UNK UNK, UNKNOWN
     Route: 062
  2. ANDRODERM [Suspect]
     Active Substance: TESTOSTERONE
     Indication: FATIGUE
  3. ANDRODERM [Suspect]
     Active Substance: TESTOSTERONE
     Indication: LIBIDO DECREASED

REACTIONS (3)
  - Deep vein thrombosis [Unknown]
  - Walking aid user [Unknown]
  - Pain [Unknown]
